FAERS Safety Report 7703000-9 (Version None)
Quarter: 2011Q3

REPORT INFORMATION
  Report Type: 
  Country: None (occurrence: None)
  Receive Date: 20110823
  Receipt Date: 20110811
  Transmission Date: 20111222
  Serious: Yes (Disabling, Other)
  Sender: FDA-Public Use
  Company Number: GB-ELI_LILLY_AND_COMPANY-GB201103005603

PATIENT
  Sex: Male
  Weight: 84 kg

DRUGS (1)
  1. HUMATROPE [Suspect]
     Dosage: UNK
     Dates: start: 20020426

REACTIONS (3)
  - BLINDNESS [None]
  - RETINAL VEIN OCCLUSION [None]
  - VITREOUS HAEMORRHAGE [None]
